FAERS Safety Report 14812982 (Version 1)
Quarter: 2018Q2

REPORT INFORMATION
  Report Type: Spontaneous
  Country: FR (occurrence: FR)
  Receive Date: 20180426
  Receipt Date: 20180426
  Transmission Date: 20180711
  Serious: Yes (Other)
  Sender: FDA-Public Use
  Company Number: FR-MERCK KGAA-2046539

PATIENT
  Age: 24 Year
  Sex: Female

DRUGS (1)
  1. NOVOTHYROX [Suspect]
     Active Substance: LEVOTHYROXINE SODIUM
     Indication: PRODUCT USED FOR UNKNOWN INDICATION

REACTIONS (13)
  - Fatigue [None]
  - Gait disturbance [None]
  - Dizziness [None]
  - Diabetes mellitus inadequate control [None]
  - Mood altered [None]
  - Glycosylated haemoglobin increased [Not Recovered/Not Resolved]
  - Insomnia [None]
  - Irritability [None]
  - Loss of personal independence in daily activities [None]
  - Personal relationship issue [None]
  - Asthenia [None]
  - Disturbance in attention [None]
  - Haematocrit decreased [None]

NARRATIVE: CASE EVENT DATE: 20170207
